FAERS Safety Report 21762697 (Version 1)
Quarter: 2022Q4

REPORT INFORMATION
  Report Type: Spontaneous
  Country: MY (occurrence: None)
  Receive Date: 20221221
  Receipt Date: 20221221
  Transmission Date: 20230113
  Serious: Yes (Other)
  Sender: FDA-Public Use
  Company Number: 2022A410944

PATIENT
  Age: 58 Year
  Sex: Female

DRUGS (1)
  1. IRESSA [Suspect]
     Active Substance: GEFITINIB
     Indication: Targeted cancer therapy
     Dosage: 250.0MG UNKNOWN
     Route: 048

REACTIONS (1)
  - Anaphylactic reaction [Recovered/Resolved]
